FAERS Safety Report 6544546-9 (Version None)
Quarter: 2010Q1

REPORT INFORMATION
  Report Type: 
  Country: None (occurrence: None)
  Receive Date: 20100121
  Receipt Date: 20100112
  Transmission Date: 20100710
  Serious: Yes (Life-Threatening, Hospitalization)
  Sender: FDA-Public Use
  Company Number: US-JNJFOC-20091102032

PATIENT
  Sex: Female
  Weight: 86.64 kg

DRUGS (1)
  1. REMICADE [Suspect]
     Indication: CROHN'S DISEASE
     Dosage: DOSE= ^3 VIALS^
     Route: 042
     Dates: start: 20091001

REACTIONS (1)
  - MENINGITIS LISTERIA [None]
